FAERS Safety Report 5452921-9 (Version None)
Quarter: 2007Q3

REPORT INFORMATION
  Report Type: 
  Country: None (occurrence: None)
  Receive Date: 20070914
  Receipt Date: 20070910
  Transmission Date: 20080115
  Serious: Yes (Other)
  Sender: FDA-Public Use
  Company Number: B0486982A

PATIENT
  Age: 73 Year
  Sex: Female

DRUGS (8)
  1. AVANDAMET [Suspect]
     Indication: DRUG USE FOR UNKNOWN INDICATION
     Dates: start: 20070201
  2. AMARYL [Concomitant]
     Dosage: 3MG PER DAY
  3. FURESIS [Concomitant]
     Dates: start: 20061101
  4. ESCOR [Concomitant]
     Dosage: 8MG TWICE PER DAY
  5. CRESTOR [Concomitant]
     Dosage: 10MG PER DAY
  6. SELECTOL [Concomitant]
     Dosage: 200MG PER DAY
  7. PRIMASPAN [Concomitant]
     Dosage: 100MG PER DAY
  8. ENANTONE [Concomitant]

REACTIONS (5)
  - ANAEMIA [None]
  - DYSPNOEA EXERTIONAL [None]
  - HAEMOGLOBIN DECREASED [None]
  - HYPERHIDROSIS [None]
  - WEIGHT INCREASED [None]
